FAERS Safety Report 18240034 (Version 1)
Quarter: 2020Q3

REPORT INFORMATION
  Report Type: Other
  Country: CN (occurrence: CN)
  Receive Date: 20200908
  Receipt Date: 20200908
  Transmission Date: 20201103
  Serious: Yes (Other)
  Sender: FDA-Public Use
  Company Number: CN-ROCHE-2672594

PATIENT
  Sex: Female

DRUGS (2)
  1. CAPECITABINE. [Suspect]
     Active Substance: CAPECITABINE
     Indication: TRIPLE NEGATIVE BREAST CANCER
     Dosage: ORALLY AFTER MEAL, FOR 14 DAYS ON THEN 7 DAYS OFF
     Route: 048
  2. APATINIB MESYLATE [Suspect]
     Active Substance: APATINIB
     Indication: TRIPLE NEGATIVE BREAST CANCER
     Dosage: HALF AN HOUR AFTER MEAL,
     Route: 048

REACTIONS (5)
  - Gastrointestinal disorder [Unknown]
  - Mouth ulceration [Unknown]
  - Myelosuppression [Unknown]
  - Palmar-plantar erythrodysaesthesia syndrome [Unknown]
  - Fatigue [Unknown]
